FAERS Safety Report 4334900-8 (Version None)
Quarter: 2004Q2

REPORT INFORMATION
  Report Type: 
  Country: None (occurrence: None)
  Receive Date: 20040408
  Receipt Date: 20040329
  Transmission Date: 20050107
  Serious: Yes (Hospitalization, Other)
  Sender: FDA-Public Use
  Company Number: PHFR2004GB01622

PATIENT
  Sex: Male

DRUGS (5)
  1. NEORAL [Suspect]
     Indication: TRANSPLANT
     Route: 048
     Dates: start: 20040105
  2. MYCOPHENOLATE MOFETIL [Concomitant]
     Indication: TRANSPLANT REJECTION
     Dosage: 250 MG, QID
     Route: 065
  3. MYCOPHENOLATE MOFETIL [Concomitant]
     Dosage: 500 MG, QID
     Route: 065
  4. PREDNISOLONE [Concomitant]
     Indication: TRANSPLANT REJECTION
     Dosage: UNK, UNK
     Route: 065
  5. CO-TRIMOXAZOLE [Concomitant]
     Indication: INFECTION PROPHYLAXIS
     Route: 065

REACTIONS (8)
  - ALANINE AMINOTRANSFERASE INCREASED [None]
  - BLOOD ALKALINE PHOSPHATASE INCREASED [None]
  - BLOOD BILIRUBIN INCREASED [None]
  - EOSINOPHIL COUNT INCREASED [None]
  - GAMMA-GLUTAMYLTRANSFERASE INCREASED [None]
  - HEPATITIS [None]
  - LIVER FUNCTION TEST ABNORMAL [None]
  - TRANSPLANT REJECTION [None]
